FAERS Safety Report 7853025-8 (Version None)
Quarter: 2011Q3

REPORT INFORMATION
  Report Type: 
  Country: None (occurrence: None)
  Receive Date: 20110914
  Receipt Date: 20100909
  Transmission Date: 20111222
  Serious: Yes (Other)
  Sender: FDA-Public Use
  Company Number: 1000014435

PATIENT
  Age: 51 Year
  Sex: Female
  Weight: 77.11 kg

DRUGS (8)
  1. BABY ASPIRIN (ACETYLSALICYLIC ACID) (ACETYLSALICYLIC ACID) [Concomitant]
  2. MVI (MVI) (MVI) [Concomitant]
  3. METHOCARBAMOL (METHOCARBAMOL) (TABLETS) (METHOCARBAMOL) [Concomitant]
  4. POTASSIUM (POTASSIUM) (POTASSIUM) [Concomitant]
  5. COENZYME Q10 (UBIDECARENONE) (UBIDECARENONE) [Concomitant]
  6. HYDROCHLOROTHIAZIDE TAB [Concomitant]
  7. CELEXA [Suspect]
     Indication: DEPRESSION
     Dosage: 40 MG (40 MG,1 IN 1 D),ORAL ; 60 MG (60 MG,1 IN 1 D),ORAL
     Route: 048
     Dates: start: 20040101
  8. PLAQUENIL (HYDROXYCHLOROQUINE) (HYDROXYCHLOROQUINE) [Concomitant]

REACTIONS (3)
  - ELECTROCARDIOGRAM QT PROLONGED [None]
  - H1N1 INFLUENZA [None]
  - CHOLECYSTECTOMY [None]
